FAERS Safety Report 6025103-X (Version None)
Quarter: 2008Q4

REPORT INFORMATION
  Report Type: 
  Country: None (occurrence: None)
  Receive Date: 20081231
  Receipt Date: 20081222
  Transmission Date: 20090506
  Serious: Yes (Hospitalization, Other)
  Sender: FDA-Public Use
  Company Number: US-AMGEN-QUU325380

PATIENT
  Sex: Female

DRUGS (1)
  1. ENBREL [Suspect]
     Indication: DRUG USE FOR UNKNOWN INDICATION
     Route: 058
     Dates: start: 20021210

REACTIONS (10)
  - APPETITE DISORDER [None]
  - BACK PAIN [None]
  - DEPRESSION [None]
  - FATIGUE [None]
  - INJECTION SITE ERYTHEMA [None]
  - INJECTION SITE URTICARIA [None]
  - INTERVERTEBRAL DISC DEGENERATION [None]
  - MOUTH ULCERATION [None]
  - MYALGIA [None]
  - WEIGHT DECREASED [None]
